FAERS Safety Report 6738544-X (Version None)
Quarter: 2010Q2

REPORT INFORMATION
  Report Type: 
  Country: None (occurrence: None)
  Receive Date: 20100524
  Receipt Date: 20100512
  Transmission Date: 20101027
  Serious: Yes (Hospitalization)
  Sender: FDA-Public Use
  Company Number: NO-TEVA-234245ISR

PATIENT
  Sex: Female

DRUGS (2)
  1. METHOTREXATE [Suspect]
     Indication: BONE SARCOMA
     Route: 041
     Dates: start: 20100419, end: 20100419
  2. GABAPENTIN [Interacting]
     Indication: BONE SARCOMA
     Route: 048
     Dates: start: 20100413, end: 20100426

REACTIONS (2)
  - DRUG INTERACTION [None]
  - DRUG LEVEL INCREASED [None]
